FAERS Safety Report 6994062-5 (Version None)
Quarter: 2010Q3

REPORT INFORMATION
  Report Type: 
  Country: None (occurrence: None)
  Receive Date: 20100917
  Receipt Date: 20100318
  Transmission Date: 20110219
  Serious: No
  Sender: FDA-Public Use
  Company Number: US-ASTRAZENECA-2010SE31912

PATIENT
  Age: 17672 Day
  Sex: Male
  Weight: 119.7 kg

DRUGS (6)
  1. SEROQUEL [Suspect]
     Route: 048
     Dates: start: 20080601
  2. NEURONTIN [Concomitant]
     Dosage: DAILY
     Dates: start: 20080521
  3. LISINOPRIL [Concomitant]
     Dates: start: 20070516
  4. HYDROCHLOROTHIAZIDE [Concomitant]
     Dosage: 20/10 DAILY
     Dates: start: 20080604
  5. TRAZODONE HCL [Concomitant]
     Dosage: 150 MG
     Dates: start: 20080618
  6. TRAMADOL [Concomitant]
     Indication: BACK PAIN
     Dates: start: 20080604

REACTIONS (2)
  - AFFECTIVE DISORDER [None]
  - TYPE 2 DIABETES MELLITUS [None]
